FAERS Safety Report 7500827-3 (Version None)
Quarter: 2011Q2

REPORT INFORMATION
  Report Type: 
  Country: None (occurrence: None)
  Receive Date: 20110524
  Receipt Date: 20110523
  Transmission Date: 20111010
  Serious: Yes (Death, Life-Threatening)
  Sender: FDA-Public Use
  Company Number: A0901101A

PATIENT
  Age: 69 Year
  Sex: Male

DRUGS (1)
  1. SORIATANE [Suspect]
     Indication: PRODUCT USED FOR UNKNOWN INDICATION
     Dates: start: 20100910, end: 20101001

REACTIONS (2)
  - DEATH [None]
  - DRUG INEFFECTIVE [None]
